FAERS Safety Report 18527514 (Version 2)
Quarter: 2021Q2

REPORT INFORMATION
  Report Type: Report from Study
  Country: US (occurrence: US)
  Receive Date: 20201120
  Receipt Date: 20210409
  Transmission Date: 20210717
  Serious: No
  Sender: FDA-Public Use
  Company Number: NVSC2020US303168

PATIENT
  Sex: Female

DRUGS (1)
  1. COSENTYX [Suspect]
     Active Substance: SECUKINUMAB
     Indication: PSORIASIS
     Dosage: 300 MG (BENEATH THE SKIN USUALLY VIA INJECTION, ONCE A WEEK FOR FIVE WEEKS AND THEN Q4 WEEKS)
     Route: 058

REACTIONS (3)
  - Injection site pain [Unknown]
  - Contusion [Unknown]
  - Pain [Unknown]
